FAERS Safety Report 9896482 (Version 1)
Quarter: 2014Q1

REPORT INFORMATION
  Report Type: Spontaneous
  Country: US (occurrence: US)
  Receive Date: 20140213
  Receipt Date: 20140213
  Transmission Date: 20141002
  Serious: No
  Sender: FDA-Public Use
  Company Number: US-BRISTOL-MYERS SQUIBB COMPANY-17462946

PATIENT
  Age: 58 Year
  Sex: Female
  Weight: 67.12 kg

DRUGS (15)
  1. ABATACEPT SUBQ INJECTION 125MG/ML [Suspect]
     Indication: RHEUMATOID ARTHRITIS
     Route: 058
     Dates: start: 20130130, end: 20130221
  2. CALCIUM [Concomitant]
  3. COQ10 [Concomitant]
  4. CELEBREX [Concomitant]
  5. EVOXAC [Concomitant]
  6. FISH OIL [Concomitant]
  7. FOLIC ACID [Concomitant]
  8. VITAMIN D [Concomitant]
  9. METHOTREXATE [Concomitant]
  10. MULTIVITAMIN [Concomitant]
  11. PREDNISONE [Concomitant]
  12. RISPERDAL [Concomitant]
  13. SIMVASTATIN [Concomitant]
  14. SULFASALAZINE [Concomitant]
  15. VITAMIN B12 [Concomitant]

REACTIONS (1)
  - Drug ineffective [Unknown]
